FAERS Safety Report 8938745 (Version 5)
Quarter: 2013Q2

REPORT INFORMATION
  Report Type: Spontaneous
  Country: HR (occurrence: HR)
  Receive Date: 20121203
  Receipt Date: 20130502
  Transmission Date: 20140414
  Serious: Yes (Hospitalization, Other)
  Sender: FDA-Public Use
  Company Number: HR-JNJFOC-20121110129

PATIENT
  Age: 28 Year
  Sex: Female

DRUGS (4)
  1. RISPOLEPT [Suspect]
     Indication: SCHIZOAFFECTIVE DISORDER
     Dosage: 3,0,3
     Route: 048
     Dates: start: 200711, end: 200912
  2. RISPOLEPT [Suspect]
     Indication: SCHIZOAFFECTIVE DISORDER
     Dosage: 2,0,2
     Route: 048
     Dates: start: 200602, end: 200711
  3. HALOPERIDOL [Suspect]
     Indication: SCHIZOAFFECTIVE DISORDER
     Route: 065
     Dates: start: 2006
  4. CLOZAPINE [Suspect]
     Indication: SCHIZOAFFECTIVE DISORDER
     Dosage: 50,50,50MG
     Route: 065

REACTIONS (9)
  - Suicide attempt [Recovered/Resolved]
  - Toxicity to various agents [Recovered/Resolved]
  - Depression [Recovered/Resolved]
  - Delusion [Recovered/Resolved]
  - Dissociation [Recovered/Resolved]
  - Schizoaffective disorder [Recovered/Resolved]
  - Treatment noncompliance [Recovered/Resolved]
  - Weight increased [Recovered/Resolved]
  - Extrapyramidal disorder [Recovered/Resolved]
